FAERS Safety Report 10064576 (Version 1)
Quarter: 2014Q1

REPORT INFORMATION
  Report Type: Spontaneous
  Country: US (occurrence: None)
  Receive Date: 20140328
  Receipt Date: 20140328
  Transmission Date: 20141002
  Serious: No
  Sender: FDA-Public Use
  Company Number: 1000054484

PATIENT
  Age: 24 Year
  Sex: Female

DRUGS (6)
  1. LINZESS [Suspect]
     Indication: CONSTIPATION
     Route: 048
     Dates: start: 20140127
  2. VIT D (ERGOCALCIFEROL) [Concomitant]
  3. CLONIDINE [Concomitant]
  4. CALCIUM [Concomitant]
  5. KEPPRA [Concomitant]
  6. LACTULOSE [Concomitant]

REACTIONS (1)
  - Blister [None]
